FAERS Safety Report 22240812 (Version 1)
Quarter: 2023Q2

REPORT INFORMATION
  Report Type: Spontaneous
  Country: BR (occurrence: BR)
  Receive Date: 20230421
  Receipt Date: 20230421
  Transmission Date: 20230721
  Serious: Yes (Hospitalization)
  Sender: FDA-Public Use
  Company Number: BR-DSJP-DSE-2023-115311

PATIENT
  Sex: Female
  Weight: 150 kg

DRUGS (1)
  1. ENHERTU [Suspect]
     Active Substance: FAM-TRASTUZUMAB DERUXTECAN-NXKI
     Indication: Product used for unknown indication
     Dosage: 5,4 MG/KG (8-9 BOTTLES IN THIS DOSE)
     Route: 065

REACTIONS (2)
  - Near death experience [Recovering/Resolving]
  - Diarrhoea [Recovering/Resolving]
